FAERS Safety Report 6018113-X (Version None)
Quarter: 2008Q4

REPORT INFORMATION
  Report Type: 
  Country: None (occurrence: None)
  Receive Date: 20081223
  Receipt Date: 20081208
  Transmission Date: 20090506
  Serious: Yes (Hospitalization)
  Sender: FDA-Public Use
  Company Number: FR-PFIZER INC-2008155571

PATIENT

DRUGS (5)
  1. VFEND [Interacting]
     Indication: ASPERGILLOSIS
     Dosage: 320 MG, 2X/DAY,EVERYDAY
  2. MYCOPHENOLATE MOFETIL [Interacting]
  3. TACROLIMUS [Suspect]
     Dosage: UNK
  4. OMEPRAZOLE [Interacting]
     Dosage: UNK
     Dates: end: 20081116
  5. METHYLPREDNISOLONE [Concomitant]

REACTIONS (3)
  - CONVULSION [None]
  - DRUG INTERACTION [None]
  - LIVER DISORDER [None]
